FAERS Safety Report 16220288 (Version 1)
Quarter: 2019Q2

REPORT INFORMATION
  Report Type: Spontaneous
  Country: DE (occurrence: DE)
  Receive Date: 20190420
  Receipt Date: 20190420
  Transmission Date: 20190711
  Serious: Yes (Hospitalization)
  Sender: FDA-Public Use
  Company Number: PHHY2019DE086739

PATIENT
  Age: 54 Year
  Sex: Female

DRUGS (15)
  1. NORTRILEN [Interacting]
     Active Substance: NORTRIPTYLINE
     Dosage: 50 MG, QD
     Route: 065
     Dates: start: 20170306, end: 20170309
  2. SIMVAHEXAL [Interacting]
     Active Substance: SIMVASTATIN
     Indication: PRODUCT USED FOR UNKNOWN INDICATION
     Dosage: 20 MG, QD (SEIT AUFNAHME)
     Route: 065
  3. VENLAFAXINA RETARD SALUTAS [Interacting]
     Active Substance: VENLAFAXINE HYDROCHLORIDE
     Indication: PRODUCT USED FOR UNKNOWN INDICATION
     Dosage: 75 MG, QD
     Route: 065
     Dates: start: 20170310
  4. NORTRILEN [Interacting]
     Active Substance: NORTRIPTYLINE
     Dosage: 100 MG, QD
     Route: 065
     Dates: start: 20170316, end: 20170322
  5. NORTRILEN [Interacting]
     Active Substance: NORTRIPTYLINE
     Dosage: 50 MG, QD
     Route: 065
     Dates: start: 20170323
  6. LITHIUM ^APOGEPHA^ [Concomitant]
     Active Substance: LITHIUM CARBONATE
     Indication: PRODUCT USED FOR UNKNOWN INDICATION
     Dosage: 225 MG, QD
     Route: 065
     Dates: start: 20170321
  7. VALDOXAN [Concomitant]
     Active Substance: AGOMELATINE
     Indication: PRODUCT USED FOR UNKNOWN INDICATION
     Dosage: 50 MG, QD (1 TAG VORHER ABGESETZT)
     Route: 065
  8. VIGANTOLETTEN [Interacting]
     Active Substance: CHOLECALCIFEROL
     Indication: PRODUCT USED FOR UNKNOWN INDICATION
     Dosage: 20000 IU, QD (SEIT AUFNAHME)
     Route: 065
  9. AMLODIPINE [Suspect]
     Active Substance: AMLODIPINE BESYLATE
     Indication: PRODUCT USED FOR UNKNOWN INDICATION
     Dosage: 5 MG, QD (SEIT AUFNAHME)
     Route: 065
  10. NORTRILEN [Interacting]
     Active Substance: NORTRIPTYLINE
     Indication: PRODUCT USED FOR UNKNOWN INDICATION
     Dosage: 25 MG, QD
     Route: 065
     Dates: start: 20170302, end: 20170305
  11. CALCIUM SANDOZ [Concomitant]
     Active Substance: CALCIUM
     Indication: PRODUCT USED FOR UNKNOWN INDICATION
     Dosage: 500 MG, QD (SEIT AUFNAHME)
     Route: 065
  12. MAGNESIUM [Concomitant]
     Active Substance: MAGNESIUM
     Indication: PRODUCT USED FOR UNKNOWN INDICATION
     Dosage: SEIT AUFAHME
     Route: 065
  13. NORTRILEN [Interacting]
     Active Substance: NORTRIPTYLINE
     Dosage: 75 MG, QD
     Route: 065
     Dates: start: 20170310, end: 20170315
  14. PLAVIX [Interacting]
     Active Substance: CLOPIDOGREL BISULFATE
     Indication: PRODUCT USED FOR UNKNOWN INDICATION
     Dosage: 75 MG, QD (SEIT AUFNAHME)
     Route: 065
  15. METOBETA [Interacting]
     Active Substance: METOPROLOL TARTRATE
     Indication: PRODUCT USED FOR UNKNOWN INDICATION
     Dosage: 190 MG, QD (SEIT AUFNAHME)
     Route: 065

REACTIONS (1)
  - Sleep disorder [Recovered/Resolved]

NARRATIVE: CASE EVENT DATE: 20170322
